FAERS Safety Report 18989572 (Version 11)
Quarter: 2022Q2

REPORT INFORMATION
  Report Type: Spontaneous
  Country: US (occurrence: US)
  Receive Date: 20210310
  Receipt Date: 20220609
  Transmission Date: 20220721
  Serious: No
  Sender: FDA-Public Use
  Company Number: US-GLAXOSMITHKLINE-US2021AMR058733

PATIENT
  Sex: Female

DRUGS (12)
  1. ZEJULA [Suspect]
     Active Substance: NIRAPARIB
     Indication: Ovarian cancer
     Dosage: 200 MG, QD
     Route: 048
     Dates: start: 202102
  2. ZEJULA [Suspect]
     Active Substance: NIRAPARIB
     Dosage: 200 MG, QD
     Dates: start: 20210223
  3. ZEJULA [Suspect]
     Active Substance: NIRAPARIB
     Dosage: 200 MG, QD
     Dates: start: 2021
  4. ZEJULA [Suspect]
     Active Substance: NIRAPARIB
     Dosage: 200 MG, QD
     Route: 048
     Dates: start: 2021
  5. ZEJULA [Suspect]
     Active Substance: NIRAPARIB
     Dosage: 200 MG, QD
     Route: 048
     Dates: start: 2021
  6. ZEJULA [Suspect]
     Active Substance: NIRAPARIB
     Dosage: 200 MG, QD
     Route: 048
     Dates: start: 2021
  7. ZEJULA [Suspect]
     Active Substance: NIRAPARIB
     Dosage: 200 MG, QD
     Route: 048
  8. ZEJULA [Suspect]
     Active Substance: NIRAPARIB
     Dosage: 200 MG
     Route: 048
     Dates: start: 20220225
  9. ZEJULA [Suspect]
     Active Substance: NIRAPARIB
     Dosage: 200 MG, QD
     Route: 048
  10. ZEJULA [Suspect]
     Active Substance: NIRAPARIB
     Dosage: 200 MG, QD
     Route: 048
  11. AVASTIN [Suspect]
     Active Substance: BEVACIZUMAB
     Indication: Product used for unknown indication
     Dosage: UNK
  12. SYNTHROID [Suspect]
     Active Substance: LEVOTHYROXINE SODIUM
     Indication: Product used for unknown indication
     Dosage: UNK

REACTIONS (12)
  - Peripheral coldness [Not Recovered/Not Resolved]
  - Constipation [Recovered/Resolved]
  - Headache [Not Recovered/Not Resolved]
  - Decreased appetite [Unknown]
  - Blood pressure increased [Not Recovered/Not Resolved]
  - Infrequent bowel movements [Not Recovered/Not Resolved]
  - Weight decreased [Not Recovered/Not Resolved]
  - Abdominal pain [Unknown]
  - Gastrointestinal pain [Unknown]
  - Peripheral swelling [Unknown]
  - Hypertension [Not Recovered/Not Resolved]
  - Anaemia [Unknown]
